FAERS Safety Report 5962949-8 (Version None)
Quarter: 2008Q4

REPORT INFORMATION
  Report Type: 
  Country: None (occurrence: None)
  Receive Date: 20081124
  Receipt Date: 20081112
  Transmission Date: 20090506
  Serious: Yes (Disabling, Other)
  Sender: FDA-Public Use
  Company Number: BR-ROCHE-591749

PATIENT
  Age: 16 Year
  Sex: Female

DRUGS (1)
  1. ROACUTAN [Suspect]
     Indication: ACNE
     Route: 048
     Dates: start: 20060601, end: 20070120

REACTIONS (5)
  - BREAST MASS [None]
  - EXOSTOSIS [None]
  - MASTITIS [None]
  - THYROID NEOPLASM [None]
  - WEIGHT INCREASED [None]
